FAERS Safety Report 15294957 (Version 1)
Quarter: 2018Q3

REPORT INFORMATION
  Report Type: Spontaneous
  Country: US (occurrence: US)
  Receive Date: 20180807
  Receipt Date: 20180807
  Transmission Date: 20181010
  Serious: Yes (Hospitalization)
  Sender: FDA-Public Use
  Company Number: None

PATIENT
  Age: 68 Year
  Sex: Male
  Weight: 69.4 kg

DRUGS (3)
  1. HYDROCODONE/ACETAMINOPHEN 5/325 [Concomitant]
  2. GILOTRIF [Suspect]
     Active Substance: AFATINIB
     Indication: TONSIL CANCER
     Route: 048
     Dates: start: 20180612, end: 20180630
  3. GILOTRIF [Suspect]
     Active Substance: AFATINIB
     Indication: METASTASES TO BONE
     Route: 048
     Dates: start: 20180612, end: 20180630

REACTIONS (8)
  - Stomatitis [None]
  - Dehydration [None]
  - Pruritus [None]
  - Weight decreased [None]
  - Diarrhoea [None]
  - Speech disorder [None]
  - Drug ineffective [None]
  - Lip swelling [None]

NARRATIVE: CASE EVENT DATE: 20180617
